FAERS Safety Report 4279740-3 (Version None)
Quarter: 2004Q1

REPORT INFORMATION
  Report Type: 
  Country: None (occurrence: None)
  Receive Date: 20040127
  Receipt Date: 20030718
  Transmission Date: 20041129
  Serious: Yes (Hospitalization)
  Sender: FDA-Public Use
  Company Number: WAES 0307USA02419

PATIENT
  Age: 87 Year
  Sex: Female

DRUGS (4)
  1. NEXIUM [Concomitant]
  2. ZETIA [Suspect]
     Indication: BLOOD CHOLESTEROL INCREASED
     Route: 048
     Dates: start: 20030712, end: 20030713
  3. LEVOXYL [Concomitant]
  4. LISINOPRIL [Concomitant]

REACTIONS (5)
  - APPENDICITIS PERFORATED [None]
  - CHOLECYSTECTOMY [None]
  - DIZZINESS [None]
  - GALLBLADDER DISORDER [None]
  - HEADACHE [None]
